FAERS Safety Report 8654510 (Version 3)
Quarter: 2012Q4

REPORT INFORMATION
  Report Type: 
  Country: US (occurrence: US)
  Receive Date: 20120709
  Receipt Date: 20120828
  Transmission Date: 20130627
  Serious: Yes (Hospitalization)
  Sender: FDA-Public Use
  Company Number: US-ACTELION-A-NJ2012-68047

PATIENT
  Age: 81 Year
  Sex: Female

DRUGS (2)
  1. TRACLEER [Suspect]
     Indication: PULMONARY ARTERIAL HYPERTENSION
     Dosage: UNK
     Route: 048
     Dates: start: 20040605
  2. TRACLEER [Suspect]
     Dosage: 1/2 of prescribed dose
     Route: 048

REACTIONS (2)
  - Diverticulitis [Unknown]
  - Liver function test abnormal [Recovering/Resolving]
